FAERS Safety Report 5788377-6 (Version None)
Quarter: 2008Q2

REPORT INFORMATION
  Report Type: 
  Country: None (occurrence: None)
  Receive Date: 20080625
  Receipt Date: 20080618
  Transmission Date: 20081010
  Serious: Yes (Other)
  Sender: FDA-Public Use
  Company Number: US-PFIZER INC-2008050851

PATIENT
  Sex: Female
  Weight: 82.6 kg

DRUGS (1)
  1. CELEBREX [Suspect]
     Indication: JOINT STIFFNESS

REACTIONS (2)
  - ARRHYTHMIA [None]
  - GASTROINTESTINAL HAEMORRHAGE [None]
